FAERS Safety Report 5541870-3 (Version None)
Quarter: 2007Q4

REPORT INFORMATION
  Report Type: 
  Country: None (occurrence: None)
  Receive Date: 20071210
  Receipt Date: 20071129
  Transmission Date: 20080405
  Serious: Yes (Other)
  Sender: FDA-Public Use
  Company Number: BR-ROCHE-534558

PATIENT
  Age: 18 Year
  Sex: Female
  Weight: 52 kg

DRUGS (2)
  1. ROACUTAN [Suspect]
     Indication: ACNE
     Route: 048
     Dates: start: 20071108, end: 20071118
  2. CONTRACEPTIVE NOS [Concomitant]
     Indication: CONTRACEPTION
     Dosage: PATIENT DID NOT TAKE CONTRACEPTIVE REGULARLY.

REACTIONS (2)
  - NO ADVERSE REACTION [None]
  - PREGNANCY [None]
